FAERS Safety Report 8011365-6 (Version None)
Quarter: 2011Q4

REPORT INFORMATION
  Report Type: 
  Country: None (occurrence: None)
  Receive Date: 20111228
  Receipt Date: 20111228
  Transmission Date: 20120403
  Serious: Yes (Hospitalization)
  Sender: FDA-Public Use
  Company Number: None

PATIENT
  Age: 53 Year
  Sex: Male
  Weight: 109 kg

DRUGS (12)
  1. OXYCONTIN [Concomitant]
     Route: 048
  2. ENOXAPARIN [Concomitant]
  3. PANTOPRAZOLE [Concomitant]
  4. EPOETIN ALFA [Concomitant]
  5. LISINOPRIL [Concomitant]
  6. AMLODIPINE [Concomitant]
  7. CHOLECALCIFEROL [Concomitant]
  8. DAPTOMYCIN [Concomitant]
  9. VANCOMYCIN HYCHLORIDE [Suspect]
     Indication: CELLULITIS
     Dosage: 1.5 GRAMS
     Route: 042
     Dates: start: 20111116, end: 20111119
  10. GLIPIZIDE [Concomitant]
  11. HEPARIN [Concomitant]
     Route: 058
  12. CITALOPRAM HYDROBROMIDE [Concomitant]

REACTIONS (2)
  - RENAL FAILURE ACUTE [None]
  - HAEMODIALYSIS [None]
